FAERS Safety Report 7562718-1 (Version None)
Quarter: 2011Q2

REPORT INFORMATION
  Report Type: 
  Country: None (occurrence: None)
  Receive Date: 20110622
  Receipt Date: 20110617
  Transmission Date: 20111010
  Serious: Yes (Other)
  Sender: FDA-Public Use
  Company Number: BR-PFIZER INC-2011108075

PATIENT
  Age: 73 Year
  Sex: Female
  Weight: 66 kg

DRUGS (14)
  1. LORAZEPAM [Interacting]
     Indication: INSOMNIA
     Dosage: HALF TABLET
  2. TYLENOL-500 [Concomitant]
     Indication: PAIN
     Dosage: UNK
     Dates: start: 20040101
  3. DIGOXIN [Concomitant]
     Dosage: UNK
  4. LYRICA [Suspect]
     Indication: DIABETIC NEUROPATHY
     Dosage: 75 MG, 1X/DAY
     Route: 048
     Dates: start: 20110510
  5. FUROSEMIDE [Concomitant]
     Indication: FLUID RETENTION
     Dosage: UNK
  6. LEVOTHYROXINE SODIUM [Concomitant]
     Indication: HYPOTHYROIDISM
     Dosage: 75 UNK, UNK
  7. CENTRUM [Concomitant]
     Dosage: UNK
     Dates: start: 20100101
  8. CAPTOPRIL [Concomitant]
     Indication: HYPERTENSION
     Dosage: UNK
     Dates: start: 20070101
  9. MORPHINE [Concomitant]
     Indication: HERPES VIRUS INFECTION
     Dosage: UNK
  10. PANTOPRAZOLE [Concomitant]
     Dosage: UNK
  11. CARVEDILOL [Concomitant]
     Indication: HYPERTENSION
     Dosage: UNK
     Dates: start: 20080101
  12. METFORMIN [Concomitant]
     Indication: DIABETES MELLITUS
     Dosage: 850 UNK, UNK
     Dates: start: 19870101
  13. GLUCOSAMINE [Concomitant]
     Indication: ARTHROPATHY
     Dosage: UNK
     Dates: start: 20060101
  14. VITAMIN E [Concomitant]
     Dosage: UNK
     Dates: start: 20100101

REACTIONS (5)
  - INSOMNIA [None]
  - SEDATION [None]
  - LISTLESS [None]
  - DRUG INTERACTION [None]
  - FEELING ABNORMAL [None]
